FAERS Safety Report 8175277-X (Version None)
Quarter: 2012Q1

REPORT INFORMATION
  Report Type: 
  Country: None (occurrence: None)
  Receive Date: 20120229
  Receipt Date: 20120223
  Transmission Date: 20120608
  Serious: Yes (Hospitalization)
  Sender: FDA-Public Use
  Company Number: FR-GENZYME-CAMP-1002078

PATIENT
  Sex: Female

DRUGS (21)
  1. ACETAMINOPHEN [Concomitant]
     Indication: CHRONIC LYMPHOCYTIC LEUKAEMIA
     Dosage: UNK, (PRETREATMENT GIVEN 30 MINUTES BEFORE INDUCTION TREATMENT)
     Route: 065
  2. LEVOTHYROXINE SODIUM [Concomitant]
     Indication: PRODUCT USED FOR UNKNOWN INDICATION
     Dosage: UNK
     Route: 065
  3. CAMPATH [Suspect]
     Dosage: 30 MG, UNK, INJECTION
     Route: 065
     Dates: start: 20111125, end: 20111125
  4. VALACYCLOVIR HYDROCHLORIDE [Concomitant]
     Indication: CHRONIC LYMPHOCYTIC LEUKAEMIA
     Dosage: UNK, (PRETREATMENT GIVEN 30 MINUTES BEFORE INDUCTION TREATMENT)
     Route: 065
  5. CAMPATH [Suspect]
     Dosage: 30 MG, UNK, INJECTION
     Route: 065
     Dates: start: 20111027, end: 20111027
  6. ACYCLOVIR [Concomitant]
     Indication: PRODUCT USED FOR UNKNOWN INDICATION
     Dosage: UNK
     Route: 065
  7. CAMPATH [Suspect]
     Indication: CHRONIC LYMPHOCYTIC LEUKAEMIA
     Dosage: UNK (37 CYCLES OF INDUCTION TREATMENT)
     Route: 058
     Dates: start: 20110705, end: 20110930
  8. CAMPATH [Suspect]
     Dosage: 30 MG, UNK, INJECTION
     Route: 065
     Dates: start: 20111110, end: 20111110
  9. CAMPATH [Suspect]
     Dosage: 30 MG, UNK, INJECTION
     Route: 065
     Dates: start: 20111223, end: 20111223
  10. DEXAMETHASONE [Concomitant]
     Indication: CHRONIC LYMPHOCYTIC LEUKAEMIA
     Dosage: UNK (37 CYCLES OF INDUCTION TREATMENT)
     Route: 048
     Dates: start: 20110705, end: 20110930
  11. NEXIUM [Concomitant]
     Indication: PRODUCT USED FOR UNKNOWN INDICATION
     Dosage: UNK
     Route: 065
  12. CAMPATH [Suspect]
     Dosage: 30 MG, UNK, INJECTION
     Route: 065
     Dates: start: 20111209, end: 20111209
  13. NEULASTA [Concomitant]
     Indication: CHRONIC LYMPHOCYTIC LEUKAEMIA
     Dosage: UNK, (PRETREATMENT GIVEN 30 MINUTES BEFORE INDUCTION TREATMENT)
     Route: 065
  14. FLUOXETINE [Concomitant]
     Indication: PRODUCT USED FOR UNKNOWN INDICATION
     Dosage: UNK
  15. FLUOXETINE [Concomitant]
     Dosage: UNK
  16. ZYMA-D2 [Concomitant]
     Indication: PRODUCT USED FOR UNKNOWN INDICATION
     Dosage: UNK
     Route: 065
  17. BACTRIM [Concomitant]
     Indication: CHRONIC LYMPHOCYTIC LEUKAEMIA
     Dosage: UNK, (PRETREATMENT GIVEN 30 MINUTES BEFORE INDUCTION TREATMENT)
     Route: 065
  18. CRESTOR [Concomitant]
     Indication: PRODUCT USED FOR UNKNOWN INDICATION
     Dosage: UNK
     Route: 065
  19. CRESTOR [Concomitant]
     Dosage: UNK
     Route: 065
  20. PENTACARINAT [Concomitant]
     Indication: PRODUCT USED FOR UNKNOWN INDICATION
     Dosage: UNK
     Route: 055
  21. ANTIHISTAMINES [Concomitant]
     Indication: CHRONIC LYMPHOCYTIC LEUKAEMIA
     Dosage: UNK, (PRETREATMENT GIVEN 30 MINUTES BEFORE INDUCTION TREATMENT)
     Route: 065

REACTIONS (2)
  - INTERSTITIAL LUNG DISEASE [None]
  - ALVEOLITIS [None]
